FAERS Safety Report 7945737-2 (Version None)
Quarter: 2011Q4

REPORT INFORMATION
  Report Type: 
  Country: None (occurrence: None)
  Receive Date: 20111129
  Receipt Date: 20111116
  Transmission Date: 20120403
  Serious: Yes (Death, Hospitalization)
  Sender: FDA-Public Use
  Company Number: US-ELI_LILLY_AND_COMPANY-US201109006372

PATIENT
  Sex: Female

DRUGS (10)
  1. CYMBALTA [Suspect]
     Dosage: 60 MG, UNK
  2. CYMBALTA [Suspect]
     Dosage: 30 MG, QD
     Route: 064
  3. ANAESTHETICS [Concomitant]
     Dosage: UNK
     Dates: start: 20100216, end: 20100216
  4. CYMBALTA [Suspect]
     Dosage: 30 MG, QD
     Route: 064
  5. METFORMIN HCL [Concomitant]
     Dosage: UNK, BID
  6. ANAESTHETICS [Concomitant]
     Indication: SALPINGECTOMY
     Dosage: UNK
     Dates: start: 20100216, end: 20100216
  7. CYMBALTA [Suspect]
     Dosage: 60 MG, UNK
  8. METFORMIN HCL [Concomitant]
     Indication: GESTATIONAL DIABETES
     Dosage: UNK, BID
  9. LABETALOL HCL [Concomitant]
     Indication: HYPERTENSION
     Dosage: 100 MG, BID
  10. LABETALOL HCL [Concomitant]
     Dosage: 100 MG, BID

REACTIONS (2)
  - FOETAL EXPOSURE DURING PREGNANCY [None]
  - PULMONARY HYPERTENSION [None]
